FAERS Safety Report 5015089-9 (Version None)
Quarter: 2006Q2

REPORT INFORMATION
  Report Type: 
  Country: None (occurrence: None)
  Receive Date: 20060426
  Receipt Date: 20060104
  Transmission Date: 20061013
  Serious: No
  Sender: FDA-Public Use
  Company Number: 215984

PATIENT
  Age: 28 Year
  Sex: Male
  Weight: 79.4 kg

DRUGS (1)
  1. XOLAIR [Suspect]
     Indication: ASTHMA
     Dosage: 12, SUBCUTANEOUS
     Route: 058
     Dates: end: 20050620

REACTIONS (1)
  - ARTHRALGIA [None]
